FAERS Safety Report 6355926-9 (Version None)
Quarter: 2009Q3

REPORT INFORMATION
  Report Type: 
  Country: None (occurrence: None)
  Receive Date: 20090915
  Receipt Date: 20071119
  Transmission Date: 20100115
  Serious: Yes (Other)
  Sender: FDA-Public Use
  Company Number: US-ASTRAZENECA-2007UW14872

PATIENT
  Age: 405 Month
  Sex: Female
  Weight: 83.9 kg

DRUGS (14)
  1. SEROQUEL [Suspect]
     Indication: SLEEP DISORDER
     Dosage: 100 MG TO 400 MG
     Route: 048
     Dates: start: 20010327
  2. SEROQUEL [Suspect]
     Dosage: 300 MG TWO TIMES A DAY
     Route: 048
     Dates: start: 20040501
  3. PAXIL [Concomitant]
     Dosage: 15 TO 30 MG
     Route: 048
     Dates: start: 20010327
  4. WELLBUTRIN SR [Concomitant]
     Route: 048
     Dates: start: 20010327
  5. NEURONTIN [Concomitant]
     Indication: AFFECTIVE DISORDER
     Dosage: 300 MG TO 1600 MG
     Route: 048
     Dates: start: 20010327
  6. KLONOPIN [Concomitant]
     Dosage: 0.5 MG TO 2 MG
     Route: 048
     Dates: start: 20010327
  7. EFFEXOR [Concomitant]
     Dosage: 150 MG TO 300 MG
     Dates: start: 20030819
  8. ZELNORM [Concomitant]
     Indication: REFLUX GASTRITIS
     Dates: start: 20040114
  9. ZELNORM [Concomitant]
     Indication: CONSTIPATION
     Dates: start: 20040114
  10. NEXIUM [Concomitant]
     Dates: start: 20040114
  11. TOPAMAX [Concomitant]
     Dosage: 25 MG TO 250 MG
     Dates: start: 20061129
  12. REMERON [Concomitant]
     Dosage: 15 MG TO 50 MG
     Dates: start: 20040114
  13. SYNTHROID [Concomitant]
     Dates: start: 20061212
  14. HYDROCHLOROTHIAZIDE [Concomitant]
     Dates: start: 20060207

REACTIONS (4)
  - DIABETIC NEUROPATHY [None]
  - GLUCOSE TOLERANCE IMPAIRED [None]
  - HYPERGLYCAEMIA [None]
  - TYPE 2 DIABETES MELLITUS [None]
